FAERS Safety Report 7573998-0 (Version None)
Quarter: 2011Q2

REPORT INFORMATION
  Report Type: 
  Country: None (occurrence: None)
  Receive Date: 20110627
  Receipt Date: 20110620
  Transmission Date: 20111010
  Serious: Yes (Hospitalization, Other)
  Sender: FDA-Public Use
  Company Number: US-JNJFOC-20110400082

PATIENT
  Sex: Female
  Weight: 124.29 kg

DRUGS (21)
  1. ABILIFY [Concomitant]
     Indication: DEPRESSION
     Route: 048
     Dates: start: 20070101, end: 20110324
  2. OXYCODONE HCL [Concomitant]
     Indication: PAIN
     Route: 048
     Dates: start: 20100101
  3. DURAGESIC-100 [Suspect]
     Indication: POST-TRAUMATIC PAIN
     Route: 062
     Dates: start: 20070301
  4. ABILIFY [Concomitant]
     Indication: ANXIETY
     Route: 048
     Dates: start: 20070101, end: 20110324
  5. ABILIFY [Concomitant]
     Indication: POST CONCUSSION SYNDROME
     Route: 048
     Dates: start: 20070101, end: 20110324
  6. REMICADE [Suspect]
     Indication: PSORIASIS
     Route: 042
     Dates: start: 20100101, end: 20101101
  7. CYMBALTA [Concomitant]
     Indication: ANXIETY
     Route: 048
     Dates: start: 20070601
  8. HYDROMORPHONE HCL [Concomitant]
     Route: 048
     Dates: start: 20101005
  9. SYNTHROID [Concomitant]
     Route: 048
     Dates: start: 20090619
  10. DURAGESIC-100 [Suspect]
     Route: 062
     Dates: start: 20060101
  11. TOPAMAX [Concomitant]
     Indication: DEPRESSION
     Route: 048
     Dates: start: 20090101, end: 20110325
  12. TOPAMAX [Concomitant]
     Indication: POST CONCUSSION SYNDROME
     Route: 048
     Dates: start: 20090101, end: 20110325
  13. CYMBALTA [Concomitant]
     Indication: DEPRESSION
     Route: 048
     Dates: start: 20070601
  14. METFORMIN HCL [Concomitant]
     Route: 048
     Dates: start: 20110414
  15. TOPAMAX [Concomitant]
     Indication: ANXIETY
     Route: 048
     Dates: start: 20090101, end: 20110325
  16. CLOBEX [Concomitant]
     Route: 065
     Dates: start: 20101214
  17. LEVOXYL [Concomitant]
     Indication: THYROID DISORDER
     Route: 048
  18. XANAX [Concomitant]
     Indication: ANXIETY
     Route: 048
     Dates: start: 20070101
  19. TRIAMCINOLONE ACETONIDE [Concomitant]
     Dates: start: 20101214
  20. CYMBALTA [Concomitant]
     Indication: POST CONCUSSION SYNDROME
     Route: 048
     Dates: start: 20070601
  21. PENICILLIN VK [Concomitant]
     Route: 048
     Dates: start: 20100614

REACTIONS (4)
  - INFUSION RELATED REACTION [None]
  - HYPOPNOEA [None]
  - ERYTHEMA [None]
  - PANCREATITIS [None]
